FAERS Safety Report 5590109-1 (Version None)
Quarter: 2008Q1

REPORT INFORMATION
  Report Type: 
  Country: None (occurrence: None)
  Receive Date: 20080114
  Receipt Date: 20070313
  Transmission Date: 20080703
  Serious: No
  Sender: FDA-Public Use
  Company Number: US-ABBOTT-07P-163-0362673-00

PATIENT
  Sex: Female
  Weight: 19.068 kg

DRUGS (2)
  1. OMNICEF [Suspect]
     Indication: EAR INFECTION
     Dosage: UNKNOWN
     Route: 048
     Dates: start: 20070228, end: 20070301
  2. OXYBUTYNIN CHLORIDE [Concomitant]
     Indication: HYPERTONIC BLADDER
     Route: 048

REACTIONS (1)
  - URTICARIA [None]
